FAERS Safety Report 7182744-4 (Version None)
Quarter: 2010Q4

REPORT INFORMATION
  Report Type: 
  Country: None (occurrence: None)
  Receive Date: 20101221
  Receipt Date: 20100602
  Transmission Date: 20110411
  Serious: No
  Sender: FDA-Public Use
  Company Number: US-AMGEN-TCS409978

PATIENT

DRUGS (6)
  1. ENBREL [Suspect]
     Indication: RHEUMATOID ARTHRITIS
     Dosage: 50 MG, QWK
     Route: 058
     Dates: start: 20100421
  2. ALENDRONATE SODIUM [Concomitant]
     Dosage: UNK UNK, UNK
     Dates: start: 20090608
  3. ALPRAZOLAM [Concomitant]
     Dosage: UNK UNK, UNK
     Dates: start: 20090323
  4. AMLODIPINE [Concomitant]
     Dosage: UNK UNK, UNK
     Dates: start: 20090323
  5. ACETAMINOPHEN AND HYDROCODONE BITARTRATE [Concomitant]
     Dosage: UNK UNK, UNK
     Dates: start: 20100306
  6. COLECALCIFEROL [Concomitant]
     Dosage: UNK UNK, UNK
     Dates: start: 20100322

REACTIONS (2)
  - HAEMATURIA [None]
  - URINARY TRACT INFECTION [None]
